FAERS Safety Report 4634479-7 (Version None)
Quarter: 2005Q2

REPORT INFORMATION
  Report Type: 
  Country: None (occurrence: None)
  Receive Date: 20050412
  Receipt Date: 20050331
  Transmission Date: 20051028
  Serious: Yes (Life-Threatening, Hospitalization)
  Sender: FDA-Public Use
  Company Number: HQWYE600531MAR05

PATIENT
  Age: 57 Year
  Sex: Male

DRUGS (7)
  1. PANTOLOC (PANTOPRAZOLE, INJECTION) [Suspect]
     Indication: ABDOMINAL PAIN UPPER
     Dosage: ^SOME TIME (S) 40 MG^ INTRAVENOUS
     Route: 042
  2. PANTOLOC (PANTOPRAZOLE, INJECTION) [Suspect]
     Indication: PELVIC PAIN
     Dosage: ^SOME TIME (S) 40 MG^ INTRAVENOUS
     Route: 042
  3. METOCLOPRAMIDE [Suspect]
     Dosage: ^SOME TIME (S) SOME DF^ INTRAVENOUS
     Route: 042
  4. INSULATARD NPH HUMAN [Concomitant]
  5. XANOR (ALPRAZOLAM) [Concomitant]
  6. TOPAMAX [Concomitant]
  7. NORVASC [Concomitant]

REACTIONS (2)
  - ANGIONEUROTIC OEDEMA [None]
  - GENERALISED OEDEMA [None]
